FAERS Safety Report 10539755 (Version 6)
Quarter: 2014Q4

REPORT INFORMATION
  Report Type: Spontaneous
  Country: US (occurrence: US)
  Receive Date: 20141024
  Receipt Date: 20141229
  Transmission Date: 20150529
  Serious: Yes (Hospitalization)
  Sender: FDA-Public Use
  Company Number: US-UNITED THERAPEUTICS-UNT-2014-009549

PATIENT
  Age: 52 Year
  Sex: Female
  Weight: 76.64 kg

DRUGS (7)
  1. REVATIO [Concomitant]
     Active Substance: SILDENAFIL CITRATE
     Indication: PRODUCT USED FOR UNKNOWN INDICATION
  2. WARFARIN [Concomitant]
     Active Substance: WARFARIN
     Indication: PRODUCT USED FOR UNKNOWN INDICATION
  3. ADEMPAS [Concomitant]
     Active Substance: RIOCIGUAT
     Indication: PRODUCT USED FOR UNKNOWN INDICATION
  4. REMODULIN [Suspect]
     Active Substance: TREPROSTINIL
     Indication: PULMONARY HYPERTENSION
     Dosage: 0.0408 ?G/KG, CONTINUING
     Route: 058
     Dates: start: 20140418
  5. LETAIRIS [Concomitant]
     Active Substance: AMBRISENTAN
     Indication: PRODUCT USED FOR UNKNOWN INDICATION
  6. REMODULIN [Suspect]
     Active Substance: TREPROSTINIL
     Indication: PULMONARY ARTERIAL HYPERTENSION
     Dosage: 0.0408 ?G/KG, CONTINUING
     Route: 058
     Dates: start: 20140418
  7. REMODULIN [Suspect]
     Active Substance: TREPROSTINIL
     Dosage: 0.0159 ?G/KG, CONTINUING
     Route: 041
     Dates: start: 20140430

REACTIONS (7)
  - Catheterisation cardiac [Unknown]
  - Stoma closure [Unknown]
  - Renal failure [Unknown]
  - Medication residue present [Unknown]
  - Pulmonary arterial hypertension [Unknown]
  - Dehydration [Unknown]
  - Colectomy [Unknown]

NARRATIVE: CASE EVENT DATE: 2014
